FAERS Safety Report 15487164 (Version 1)
Quarter: 2018Q4

REPORT INFORMATION
  Report Type: Spontaneous
  Country: US (occurrence: US)
  Receive Date: 20181010
  Receipt Date: 20181010
  Transmission Date: 20190205
  Serious: No
  Sender: FDA-Public Use
  Company Number: None

PATIENT
  Age: 62 Year
  Sex: Female
  Weight: 94.95 kg

DRUGS (8)
  1. METFORMIN [Concomitant]
     Active Substance: METFORMIN HYDROCHLORIDE
  2. TURMERIC [Concomitant]
     Active Substance: HERBALS\TURMERIC
  3. BUPROPION HCL XL 300MG TABLET-GENERIC FOR APLENZIN WELLBUTRINXL [Suspect]
     Active Substance: BUPROPION HYDROCHLORIDE
     Indication: ANXIETY
     Dosage: ?          QUANTITY:1 TABLET(S);?
     Route: 048
  4. MULTIVITAMIN [Concomitant]
     Active Substance: VITAMINS
  5. BUPROPION HCL XL 300MG TABLET-GENERIC FOR APLENZIN WELLBUTRINXL [Suspect]
     Active Substance: BUPROPION HYDROCHLORIDE
     Indication: DEPRESSION
     Dosage: ?          QUANTITY:1 TABLET(S);?
     Route: 048
  6. ALTACE [Concomitant]
     Active Substance: RAMIPRIL
  7. VITAMIN B COMPLEX [Concomitant]
     Active Substance: CYANOCOBALAMIN\DEXPANTHENOL\NIACINAMIDE\PYRIDOXINE HYDROCHLORIDE\RIBOFLAVIN 5^-PHOSPHATE SODIUM\THIAMINE HYDROCHLORIDE\VITAMIN B COMPLEX
  8. BUPROPION XL [Concomitant]
     Active Substance: BUPROPION

REACTIONS (8)
  - Malaise [None]
  - Agitation [None]
  - Drug ineffective [None]
  - Product complaint [None]
  - Product substitution issue [None]
  - Depression [None]
  - Anxiety [None]
  - Product residue present [None]

NARRATIVE: CASE EVENT DATE: 20181008
